FAERS Safety Report 25241239 (Version 6)
Quarter: 2025Q4

REPORT INFORMATION
  Report Type: Spontaneous
  Country: JP (occurrence: JP)
  Receive Date: 20250425
  Receipt Date: 20251215
  Transmission Date: 20260118
  Serious: Yes (Life-Threatening, Hospitalization, Other)
  Sender: BRISTOL-MYERS SQUIBB COMPANY
  Company Number: JP-BRISTOL-MYERS SQUIBB COMPANY-2025-058530

PATIENT
  Age: 58 Year
  Sex: Male
  Weight: 63.2 kg

DRUGS (11)
  1. YERVOY [Suspect]
     Active Substance: IPILIMUMAB
     Indication: Metastatic renal cell carcinoma
     Dosage: NUMBER OF DOSES: 2 DOSES
     Route: 041
     Dates: start: 20241216, end: 20250205
  2. OPDIVO [Suspect]
     Active Substance: NIVOLUMAB
     Indication: Metastatic renal cell carcinoma
     Dosage: NUMBER OF DOSES: 2 DOSES
     Route: 041
     Dates: start: 20241216, end: 20250205
  3. SULFAMETHOXAZOLE\TRIMETHOPRIM [Suspect]
     Active Substance: SULFAMETHOXAZOLE\TRIMETHOPRIM
     Indication: Product used for unknown indication
  4. PIPERACILLIN SODIUM\TAZOBACTAM SODIUM [Suspect]
     Active Substance: PIPERACILLIN SODIUM\TAZOBACTAM SODIUM
     Indication: Product used for unknown indication
  5. CALONAL [Concomitant]
     Active Substance: ACETAMINOPHEN
     Indication: Product used for unknown indication
     Dosage: NUMBER OF DOSES: 4 DOSES
     Route: 048
  6. TRAMADOL [Concomitant]
     Active Substance: TRAMADOL
     Indication: Product used for unknown indication
     Dosage: NUMBER OF DOSES: 4 DOSES
  7. FEXOFENADINE [Concomitant]
     Active Substance: FEXOFENADINE HYDROCHLORIDE
     Indication: Product used for unknown indication
     Dosage: NUMBER OF DOSES:4
  8. AZILSARTAN KAMEDOXOMIL [Concomitant]
     Active Substance: AZILSARTAN KAMEDOXOMIL
     Indication: Hypertension
     Dosage: NUMBER OF DOESE:1
  9. CALCIUM CARBONATE\CHOLECALCIFEROL\MAGNESIUM CARBONATE [Concomitant]
     Active Substance: CALCIUM CARBONATE\CHOLECALCIFEROL\MAGNESIUM CARBONATE
     Indication: Product used for unknown indication
     Dosage: DOSE:2TABLE, NUMBER OF DOESE:1
  10. MYSER [DIFLUPREDNATE] [Concomitant]
     Indication: Product used for unknown indication
     Dosage: APPROPRIATE AMOUNT, NUMBER OF DOSES: SEVERAL DAYS
  11. HEPARINOID [Concomitant]
     Indication: Product used for unknown indication
     Dosage: APPROPRIATE AMOUNT, NUMBER OF DOSES: SEVERAL DAYS

REACTIONS (5)
  - Toxic epidermal necrolysis [Recovered/Resolved]
  - Hepatitis [Recovering/Resolving]
  - Cytokine release syndrome [Recovered/Resolved]
  - Pneumonia influenzal [Unknown]
  - Immune-mediated lung disease [Recovering/Resolving]

NARRATIVE: CASE EVENT DATE: 20241217
